FAERS Safety Report 10720647 (Version 1)
Quarter: 2015Q1

REPORT INFORMATION
  Report Type: Report from Study
  Country: NZ (occurrence: NZ)
  Receive Date: 20150119
  Receipt Date: 20150119
  Transmission Date: 20150721
  Serious: No
  Sender: FDA-Public Use
  Company Number: NZ-GLAXOSMITHKLINE-B1025259A

PATIENT
  Age: 69 Year
  Sex: Male

DRUGS (1)
  1. DABRAFENIB [Suspect]
     Active Substance: DABRAFENIB
     Indication: METASTATIC MALIGNANT MELANOMA
     Dosage: 300MG OD 25FEB13 - 04MAR130MG 05MAR13 - 07MAR13225MG OD 08MAR13 - 18MAR130MG  19MAR13 - 26MAR13[...]
     Dates: start: 20130225

REACTIONS (4)
  - Palmar-plantar erythrodysaesthesia syndrome [Unknown]
  - Nausea [Unknown]
  - Fatigue [Not Recovered/Not Resolved]
  - Hyperkeratosis [Unknown]

NARRATIVE: CASE EVENT DATE: 20130225
